FAERS Safety Report 4264444-3 (Version None)
Quarter: 2004Q1

REPORT INFORMATION
  Report Type: 
  Country: None (occurrence: None)
  Receive Date: 20040106
  Receipt Date: 20031223
  Transmission Date: 20041129
  Serious: Yes (Other)
  Sender: FDA-Public Use
  Company Number: GB-GLAXOSMITHKLINE-B0318606A

PATIENT
  Age: 34 Year
  Sex: Female
  Weight: 53.98 kg

DRUGS (5)
  1. ZYBAN [Suspect]
     Indication: EX-SMOKER
     Route: 048
     Dates: start: 20030610, end: 20030720
  2. SALBUTAMOL [Concomitant]
     Route: 065
  3. FLUTICASONE PROPIONATE [Concomitant]
     Route: 065
  4. BETAMETHASONE [Concomitant]
     Route: 065
  5. OXYTETRACYCLINE [Concomitant]
     Route: 065

REACTIONS (1)
  - ECZEMA [None]
